FAERS Safety Report 16229800 (Version 1)
Quarter: 2019Q2

REPORT INFORMATION
  Report Type: Spontaneous
  Country: NL (occurrence: NL)
  Receive Date: 20190423
  Receipt Date: 20190423
  Transmission Date: 20190711
  Serious: Yes (Hospitalization)
  Sender: FDA-Public Use
  Company Number: NL-PFIZER INC-2019165689

PATIENT
  Age: 63 Year
  Sex: Male
  Weight: 115 kg

DRUGS (7)
  1. VENLAFAXINE HCL [Suspect]
     Active Substance: VENLAFAXINE HYDROCHLORIDE
     Indication: DEPRESSION
  2. ZOLPIDEM [Concomitant]
     Active Substance: ZOLPIDEM\ZOLPIDEM TARTRATE
     Dosage: 10 MG FOR THE NIGHT
  3. VENLAFAXINE HCL [Suspect]
     Active Substance: VENLAFAXINE HYDROCHLORIDE
     Indication: FEAR
     Dosage: 150 MG, 1X/DAY (1X/DAY 2 PIECES 75)
     Route: 050
     Dates: start: 20181115
  4. QUETIAPINE. [Concomitant]
     Active Substance: QUETIAPINE
     Dosage: 250 MG, DAILY
  5. COLECALCIFEROL [Concomitant]
     Active Substance: CHOLECALCIFEROL
     Dosage: UNK
     Route: 050
     Dates: start: 2018, end: 20190220
  6. QUETIAPINE. [Concomitant]
     Active Substance: QUETIAPINE
     Dosage: 150 MG, UNK
     Dates: start: 20181001
  7. PANTOPRAZOLE [Concomitant]
     Active Substance: PANTOPRAZOLE
     Dosage: UNK

REACTIONS (11)
  - Fear [Not Recovered/Not Resolved]
  - Constipation [Unknown]
  - Condition aggravated [Not Recovered/Not Resolved]
  - Nausea [Not Recovered/Not Resolved]
  - Asthenia [Not Recovered/Not Resolved]
  - Headache [Unknown]
  - Malaise [Not Recovered/Not Resolved]
  - Nightmare [Unknown]
  - Insomnia [Not Recovered/Not Resolved]
  - Hypertension [Unknown]
  - Tinnitus [Unknown]

NARRATIVE: CASE EVENT DATE: 20181120
